FAERS Safety Report 21967015 (Version 1)
Quarter: 2023Q1

REPORT INFORMATION
  Report Type: Spontaneous
  Country: US (occurrence: None)
  Receive Date: 20230207
  Receipt Date: 20230207
  Transmission Date: 20230418
  Serious: Yes (Hospitalization)
  Sender: FDA-Public Use
  Company Number: None

PATIENT
  Age: 32 Year
  Sex: Male

DRUGS (15)
  1. AMBRISENTAN [Suspect]
     Active Substance: AMBRISENTAN
     Indication: Pulmonary arterial hypertension
     Dosage: FREQUENCY : DAILY;?
     Route: 048
     Dates: start: 20140826
  2. alvesco HFA [Concomitant]
  3. oxygen intranasal [Concomitant]
  4. DIGOXIN [Concomitant]
     Active Substance: DIGOXIN
  5. PREDNISONE [Concomitant]
     Active Substance: PREDNISONE
  6. ALBUTEROL SULFATE [Concomitant]
     Active Substance: ALBUTEROL SULFATE
  7. BENZONATATE [Concomitant]
     Active Substance: BENZONATATE
  8. INSPRA [Concomitant]
     Active Substance: EPLERENONE
  9. COLCHICINE [Concomitant]
     Active Substance: COLCHICINE
  10. TORSEMIDE [Concomitant]
     Active Substance: TORSEMIDE
  11. METOPROLOL [Concomitant]
     Active Substance: METOPROLOL
  12. POTASSIUM CHLORIDE [Concomitant]
     Active Substance: POTASSIUM CHLORIDE
  13. WARFARIN [Concomitant]
     Active Substance: WARFARIN
  14. triamcinolone top oint [Concomitant]
  15. SILDENAFIL [Suspect]
     Active Substance: SILDENAFIL

REACTIONS (1)
  - Pneumonia [None]

NARRATIVE: CASE EVENT DATE: 20230131
